FAERS Safety Report 8580873-1 (Version None)
Quarter: 2012Q3

REPORT INFORMATION
  Report Type: 
  Country: None (occurrence: None)
  Receive Date: 20120726
  Receipt Date: 20120514
  Transmission Date: 20120928
  Serious: Yes (Disabling)
  Sender: FDA-Public Use
  Company Number: 2012INDREG0029

PATIENT
  Age: 91 Year
  Sex: Male

DRUGS (5)
  1. WARFARIN SODIUM [Concomitant]
  2. FERROUS FUMARATE [Concomitant]
  3. LEVETIRACETAM [Suspect]
     Indication: CEREBRAL INFARCTION
     Dosage: 750 MG, BID, ORAL
     Route: 048
     Dates: end: 20120405
  4. BISOPROLOL FUMARATE [Concomitant]
  5. FUROSEMIDE [Concomitant]

REACTIONS (1)
  - MYOCLONUS [None]
